FAERS Safety Report 4366842-6 (Version None)
Quarter: 2004Q2

REPORT INFORMATION
  Report Type: 
  Country: None (occurrence: None)
  Receive Date: 20040528
  Receipt Date: 20030223
  Transmission Date: 20050107
  Serious: No
  Sender: FDA-Public Use
  Company Number: US-GLAXOSMITHKLINE-A0443205A

PATIENT
  Age: 66 Year
  Sex: Female

DRUGS (1)
  1. BACTROBAN [Suspect]
     Indication: ECZEMA
     Dosage: 1APP TWICE PER DAY
     Route: 061

REACTIONS (3)
  - DRUG INEFFECTIVE [None]
  - IMPAIRED HEALING [None]
  - PHARMACEUTICAL PRODUCT COMPLAINT [None]
